FAERS Safety Report 10190104 (Version 9)
Quarter: 2015Q2

REPORT INFORMATION
  Report Type: Spontaneous
  Country: US (occurrence: US)
  Receive Date: 20140522
  Receipt Date: 20150521
  Transmission Date: 20150821
  Serious: Yes (Hospitalization, Disabling, Other)
  Sender: FDA-Public Use
  Company Number: US-009507513-1405USA011479

PATIENT
  Sex: Female
  Weight: 56.24 kg

DRUGS (8)
  1. FOSAMAX [Suspect]
     Active Substance: ALENDRONATE SODIUM
     Dosage: 70 MG, QW
     Route: 048
     Dates: start: 200602, end: 200802
  2. FOSAMAX [Suspect]
     Active Substance: ALENDRONATE SODIUM
     Dosage: 35 MG QW
     Route: 048
     Dates: end: 200107
  3. ALENDRONATE SODIUM. [Suspect]
     Active Substance: ALENDRONATE SODIUM
     Indication: OSTEOPOROSIS
     Dosage: 70 MG, QW
     Route: 048
     Dates: start: 200802, end: 201201
  4. CHOLECALCIFEROL [Concomitant]
     Active Substance: CHOLECALCIFEROL
     Dosage: 800 IU, QD
     Dates: start: 1990
  5. FOSAMAX [Suspect]
     Active Substance: ALENDRONATE SODIUM
     Indication: OSTEOPOROSIS
     Dosage: 70 MG, QW
     Route: 048
     Dates: start: 199901, end: 200502
  6. FOSAMAX [Suspect]
     Active Substance: ALENDRONATE SODIUM
     Dosage: 70 MG, QW
     Route: 048
     Dates: start: 20010727
  7. CALCIUM (UNSPECIFIED) [Concomitant]
     Active Substance: CALCIUM
     Dosage: 600 MG, UNK
     Dates: start: 1990
  8. FOSAMAX [Suspect]
     Active Substance: ALENDRONATE SODIUM
     Dosage: 5 MG, QD
     Route: 048
     Dates: start: 19990603

REACTIONS (29)
  - Plantar fasciitis [Unknown]
  - Fall [Unknown]
  - Femur fracture [Not Recovered/Not Resolved]
  - Spinal fusion surgery [Unknown]
  - Osteoarthritis [Unknown]
  - Neurodermatitis [Unknown]
  - Osteopenia [Unknown]
  - Cyst [Unknown]
  - Fatigue [Unknown]
  - Femur fracture [Recovering/Resolving]
  - Cataract operation [Unknown]
  - Plasma cell myeloma [Unknown]
  - Medical device complication [Unknown]
  - Angina pectoris [Unknown]
  - Hyperlipidaemia [Unknown]
  - Lumbar radiculopathy [Unknown]
  - Osteoarthritis [Unknown]
  - Nocturia [Unknown]
  - Drug ineffective [Unknown]
  - Stress fracture [Not Recovered/Not Resolved]
  - Feeling abnormal [Unknown]
  - Hypothyroidism [Unknown]
  - Gastritis [Unknown]
  - Intramedullary rod insertion [Unknown]
  - Osteoporosis [Not Recovered/Not Resolved]
  - Knee arthroplasty [Unknown]
  - Arthritis [Unknown]
  - Asthenia [Unknown]
  - Nausea [Unknown]

NARRATIVE: CASE EVENT DATE: 19990527
